FAERS Safety Report 12243295 (Version 1)
Quarter: 2016Q2

REPORT INFORMATION
  Report Type: Spontaneous
  Country: US (occurrence: US)
  Receive Date: 20160406
  Receipt Date: 20160406
  Transmission Date: 20160815
  Serious: No
  Sender: FDA-Public Use
  Company Number: US-SA-2015SA172767

PATIENT
  Age: 57 Year
  Sex: Male

DRUGS (1)
  1. ALLEGRA-D 24 HOUR [Suspect]
     Active Substance: FEXOFENADINE HYDROCHLORIDE\PSEUDOEPHEDRINE HYDROCHLORIDE
     Indication: MULTIPLE ALLERGIES
     Dosage: PRODUCT STARTED TWO YEARS AGO.
     Route: 048

REACTIONS (4)
  - Urine analysis abnormal [Unknown]
  - Mobility decreased [Unknown]
  - Cerebral disorder [Unknown]
  - Blood test abnormal [Unknown]
